FAERS Safety Report 23091017 (Version 1)
Quarter: 2023Q4

REPORT INFORMATION
  Report Type: Spontaneous
  Country: US (occurrence: US)
  Receive Date: 20231020
  Receipt Date: 20231020
  Transmission Date: 20240110
  Serious: No
  Sender: FDA-Public Use
  Company Number: US-BRISTOL-MYERS SQUIBB COMPANY-2023-150102

PATIENT
  Age: 80 Year
  Sex: Female

DRUGS (3)
  1. REVLIMID [Suspect]
     Active Substance: LENALIDOMIDE
     Indication: Plasma cell myeloma
     Dosage: QD X21D, OFF 7 D
     Route: 048
     Dates: start: 20231011
  2. DEXAMETHASONE [Concomitant]
     Active Substance: DEXAMETHASONE
     Indication: Plasma cell myeloma
     Route: 048
     Dates: start: 20231011
  3. NINLARO [Concomitant]
     Active Substance: IXAZOMIB CITRATE
     Indication: Plasma cell myeloma
     Route: 048
     Dates: start: 20231011

REACTIONS (1)
  - Swelling [Not Recovered/Not Resolved]

NARRATIVE: CASE EVENT DATE: 20231016
